FAERS Safety Report 18449945 (Version 1)
Quarter: 2020Q4

REPORT INFORMATION
  Report Type: Spontaneous
  Country: US (occurrence: US)
  Receive Date: 20201102
  Receipt Date: 20201102
  Transmission Date: 20210114
  Serious: No
  Sender: FDA-Public Use
  Company Number: US-JNJFOC-20201044729

PATIENT
  Sex: Female

DRUGS (1)
  1. WOMENS ROGAINE UNSCENTED [Suspect]
     Active Substance: MINOXIDIL
     Indication: ALOPECIA
     Dosage: DOSE AS A INDEX FINGER KNUCKLE TIP, USED TWICE
     Route: 061

REACTIONS (3)
  - Scab [Not Recovered/Not Resolved]
  - Incorrect dose administered [Unknown]
  - Application site rash [Recovered/Resolved]
